FAERS Safety Report 4964794-9 (Version None)
Quarter: 2006Q2

REPORT INFORMATION
  Report Type: 
  Country: None (occurrence: None)
  Receive Date: 20060406
  Receipt Date: 20060125
  Transmission Date: 20061013
  Serious: Yes (Other)
  Sender: FDA-Public Use
  Company Number: FR-ROCHE-433705

PATIENT
  Age: 63 Year
  Sex: Male
  Weight: 74 kg

DRUGS (5)
  1. RIVOTRIL [Suspect]
     Indication: PAIN
     Route: 048
  2. NEURONTIN [Concomitant]
     Indication: PAIN
  3. TEMGESIC [Concomitant]
     Indication: PAIN
  4. STABLON [Concomitant]
  5. TOFRANIL [Concomitant]

REACTIONS (1)
  - HEPATIC STEATOSIS [None]
